FAERS Safety Report 5352103-5 (Version None)
Quarter: 2007Q2

REPORT INFORMATION
  Report Type: 
  Country: None (occurrence: None)
  Receive Date: 20070606
  Receipt Date: 20070522
  Transmission Date: 20071010
  Serious: Yes (Hospitalization)
  Sender: FDA-Public Use
  Company Number: 230335K07CAN

PATIENT
  Sex: Female

DRUGS (5)
  1. REBIF [Suspect]
     Indication: RELAPSING-REMITTING MULTIPLE SCLEROSIS
     Dosage: 22 MCG
     Dates: start: 20050508
  2. AMANTADINE /00055901/ [Concomitant]
  3. VITAMIN CAP [Concomitant]
  4. OMEGA 3 (FISH OIL) [Concomitant]
  5. NASACORT [Concomitant]

REACTIONS (2)
  - APPENDICECTOMY [None]
  - MULTIPLE SCLEROSIS [None]
